FAERS Safety Report 21492195 (Version 2)
Quarter: 2022Q4

REPORT INFORMATION
  Report Type: Report from Study
  Country: US (occurrence: US)
  Receive Date: 20221021
  Receipt Date: 20221028
  Transmission Date: 20230113
  Serious: Yes (Other)
  Sender: FDA-Public Use
  Company Number: US-BoehringerIngelheim-2022-BI-187061

PATIENT
  Age: 75 Year
  Sex: Male

DRUGS (4)
  1. OFEV [Suspect]
     Active Substance: NINTEDANIB
     Indication: Systemic sclerosis pulmonary
     Route: 048
     Dates: start: 20220801, end: 20220810
  2. OFEV [Suspect]
     Active Substance: NINTEDANIB
     Indication: Pulmonary arterial hypertension
  3. ACTEMRA ACTPEN [Concomitant]
     Active Substance: TOCILIZUMAB
     Indication: Rheumatoid arthritis
     Dosage: 162MG/0.9M
     Route: 058
     Dates: start: 20220712
  4. ACTEMRA ACTPEN [Concomitant]
     Active Substance: TOCILIZUMAB
     Indication: Systemic sclerosis pulmonary

REACTIONS (6)
  - Oesophageal carcinoma [Not Recovered/Not Resolved]
  - Loss of personal independence in daily activities [Unknown]
  - Fatigue [Not Recovered/Not Resolved]
  - Headache [Not Recovered/Not Resolved]
  - Diarrhoea [Not Recovered/Not Resolved]
  - Intentional product use issue [Unknown]
